FAERS Safety Report 8166713-3 (Version None)
Quarter: 2012Q1

REPORT INFORMATION
  Report Type: 
  Country: None (occurrence: None)
  Receive Date: 20120227
  Receipt Date: 20120220
  Transmission Date: 20120608
  Serious: Yes (Death, Hospitalization, Other)
  Sender: FDA-Public Use
  Company Number: FR-SANOFI-AVENTIS-2012SA011371

PATIENT
  Age: 65 Year
  Sex: Male

DRUGS (8)
  1. INDAPAMIDE [Suspect]
     Route: 048
  2. REPAGLINIDE [Suspect]
     Route: 048
  3. VERAPAMIL HYDROCHLORIDE [Suspect]
     Route: 048
  4. BUDESONIDE W/FORMOTEROL FUMARATE [Suspect]
     Dosage: ROUTE: RESPIRATORY
  5. IRBESARTAN [Suspect]
     Route: 048
  6. EZETIMIBE [Suspect]
     Route: 048
  7. LEVOTHYROXINE SODIUM [Suspect]
     Route: 048
  8. PREVISCAN [Suspect]
     Route: 048

REACTIONS (6)
  - CYTOLYTIC HEPATITIS [None]
  - PNEUMONIA STAPHYLOCOCCAL [None]
  - EOSINOPHILIA [None]
  - ACUTE RESPIRATORY DISTRESS SYNDROME [None]
  - RENAL FAILURE ACUTE [None]
  - CARDIOGENIC SHOCK [None]
